FAERS Safety Report 8604349-8 (Version None)
Quarter: 2012Q3

REPORT INFORMATION
  Report Type: 
  Country: None (occurrence: None)
  Receive Date: 20120820
  Receipt Date: 20120809
  Transmission Date: 20120928
  Serious: Yes (Other)
  Sender: FDA-Public Use
  Company Number: US-JNJFOC-20120806376

PATIENT
  Sex: Female

DRUGS (2)
  1. REMICADE [Suspect]
     Indication: RHEUMATOID ARTHRITIS
     Dosage: 50TH DOSE
     Route: 042
     Dates: start: 20110920
  2. REMICADE [Suspect]
     Dosage: DOSE: APPROXIMATELY 600 MG.
     Route: 042

REACTIONS (6)
  - PYELONEPHRITIS ACUTE [None]
  - NEPHROLITHIASIS [None]
  - BACTERAEMIA [None]
  - BACK PAIN [None]
  - OSTEOMYELITIS [None]
  - THROMBOPHLEBITIS [None]
